FAERS Safety Report 8155796-2 (Version None)
Quarter: 2012Q1

REPORT INFORMATION
  Report Type: 
  Country: None (occurrence: None)
  Receive Date: 20120215
  Receipt Date: 20120206
  Transmission Date: 20120608
  Serious: Yes (Other)
  Sender: FDA-Public Use
  Company Number: AUR-APL-2012-00839

PATIENT
  Age: 47 Year
  Sex: Female

DRUGS (2)
  1. SERTRALINE HYDROCHLORIDE [Suspect]
     Indication: COMPULSIONS
     Dosage: 100 MG, 1 D, UNKNOWN
  2. QUETIAPINE FUMARATE [Suspect]
     Indication: PSYCHOTIC DISORDER
     Dosage: 800 MG, 1 D, UNKNOWN

REACTIONS (1)
  - PLEUROTHOTONUS [None]
